FAERS Safety Report 26165655 (Version 1)
Quarter: 2025Q4

REPORT INFORMATION
  Report Type: Spontaneous
  Country: MK (occurrence: MK)
  Receive Date: 20251216
  Receipt Date: 20251216
  Transmission Date: 20260118
  Serious: Yes (Hospitalization)
  Sender: BRISTOL-MYERS SQUIBB COMPANY
  Company Number: MK-BRISTOL-MYERS SQUIBB COMPANY-2025-167096

PATIENT
  Age: 67 Year
  Sex: Female

DRUGS (1)
  1. AZACITIDINE [Suspect]
     Active Substance: AZACITIDINE
     Indication: Acute myelomonocytic leukaemia
     Dosage: 6 CYCLES

REACTIONS (3)
  - Platelet count decreased [Unknown]
  - Haemorrhagic disorder [Unknown]
  - White blood cell count decreased [Unknown]
